FAERS Safety Report 8543174-3 (Version None)
Quarter: 2012Q3

REPORT INFORMATION
  Report Type: 
  Country: None (occurrence: None)
  Receive Date: 20120727
  Receipt Date: 20120716
  Transmission Date: 20120928
  Serious: Yes (Life-Threatening, Hospitalization)
  Sender: FDA-Public Use
  Company Number: US-JNJFOC-20120707408

PATIENT
  Sex: Female
  Weight: 95.26 kg

DRUGS (5)
  1. TOPAMAX [Suspect]
     Route: 048
     Dates: start: 20020101, end: 20080101
  2. TOPAMAX [Suspect]
     Indication: COMPLEX REGIONAL PAIN SYNDROME
     Route: 048
  3. TOPIRAMATE [Suspect]
     Indication: PRODUCT USED FOR UNKNOWN INDICATION
     Route: 048
     Dates: start: 20020101
  4. UNKNOWN MEDICATION [Concomitant]
     Route: 065
  5. TOPAMAX [Suspect]
     Dosage: 100 MG EVERY 4 HOURS
     Route: 048
     Dates: start: 20080101

REACTIONS (13)
  - MALAISE [None]
  - COLON CANCER METASTATIC [None]
  - ALOPECIA [None]
  - BRADYCARDIA [None]
  - SYNCOPE [None]
  - PANCREATIC CARCINOMA [None]
  - RECTAL HAEMORRHAGE [None]
  - IRRITABLE BOWEL SYNDROME [None]
  - POLYP [None]
  - CARDIAC FAILURE [None]
  - FEELING ABNORMAL [None]
  - RASH [None]
  - FATIGUE [None]
